FAERS Safety Report 25790304 (Version 1)
Quarter: 2025Q3

REPORT INFORMATION
  Report Type: Spontaneous
  Country: EU (occurrence: EU)
  Receive Date: 20250911
  Receipt Date: 20250911
  Transmission Date: 20251020
  Serious: Yes (Other)
  Sender: RANBAXY
  Company Number: EU-SUN PHARMACEUTICAL INDUSTRIES LTD-2025RR-526333

PATIENT
  Age: 50 Year
  Sex: Male

DRUGS (2)
  1. EZETIMIBE [Interacting]
     Active Substance: EZETIMIBE
     Indication: Hypertriglyceridaemia
     Route: 048
     Dates: start: 202412, end: 20250305
  2. EZETIMIBE [Interacting]
     Active Substance: EZETIMIBE
     Route: 048
     Dates: start: 20250402, end: 20250509

REACTIONS (1)
  - Hepatic cytolysis [Recovering/Resolving]
